FAERS Safety Report 18746750 (Version 1)
Quarter: 2021Q1

REPORT INFORMATION
  Report Type: Spontaneous
  Country: US (occurrence: US)
  Receive Date: 20210115
  Receipt Date: 20210115
  Transmission Date: 20210419
  Serious: No
  Sender: FDA-Public Use
  Company Number: US-PFIZER INC-2021028478

PATIENT
  Age: 68 Year
  Sex: Female

DRUGS (1)
  1. AMLODIPINE BESILATE [Suspect]
     Active Substance: AMLODIPINE BESYLATE
     Indication: HYPERTENSION
     Dosage: UNK

REACTIONS (7)
  - Insomnia [Unknown]
  - Abdominal discomfort [Unknown]
  - Blood pressure fluctuation [Unknown]
  - Dizziness [Unknown]
  - Vomiting [Recovering/Resolving]
  - Abdominal pain upper [Unknown]
  - Drug ineffective [Unknown]
